FAERS Safety Report 11876175 (Version 2)
Quarter: 2016Q1

REPORT INFORMATION
  Report Type: Spontaneous
  Country: BR (occurrence: BR)
  Receive Date: 20151229
  Receipt Date: 20160209
  Transmission Date: 20160526
  Serious: Yes (Death)
  Sender: FDA-Public Use
  Company Number: BR-BAYER-2015-493445

PATIENT
  Age: 10 Day
  Sex: Male

DRUGS (1)
  1. YASMIN [Suspect]
     Active Substance: DROSPIRENONE\ETHINYL ESTRADIOL
     Route: 064

REACTIONS (5)
  - Septic shock [Fatal]
  - Hypoglycaemia neonatal [Fatal]
  - Premature baby [Fatal]
  - Sepsis neonatal [Fatal]
  - Disseminated intravascular coagulation [Fatal]
